FAERS Safety Report 20903798 (Version 1)
Quarter: 2022Q2

REPORT INFORMATION
  Report Type: Report from Study
  Country: US (occurrence: US)
  Receive Date: 20220602
  Receipt Date: 20220602
  Transmission Date: 20220720
  Serious: Yes (Hospitalization, Other)
  Sender: FDA-Public Use
  Company Number: US-BRISTOL-MYERS SQUIBB COMPANY-2022-046980

PATIENT
  Age: 56 Year
  Sex: Female

DRUGS (1)
  1. ABECMA [Suspect]
     Active Substance: IDECABTAGENE VICLEUCEL
     Indication: Plasma cell myeloma
     Dosage: CAR+T CELLS 1 UNIT
     Route: 065
     Dates: start: 20220509, end: 20220509

REACTIONS (3)
  - Pyrexia [Recovered/Resolved]
  - Muscular weakness [Unknown]
  - Coma [Unknown]

NARRATIVE: CASE EVENT DATE: 20220509
